FAERS Safety Report 7530161-7 (Version None)
Quarter: 2011Q2

REPORT INFORMATION
  Report Type: 
  Country: None (occurrence: None)
  Receive Date: 20110607
  Receipt Date: 20110523
  Transmission Date: 20111010
  Serious: Yes (Death, Hospitalization)
  Sender: FDA-Public Use
  Company Number: US-JNJFOC-20110504719

PATIENT
  Age: 50 Year
  Sex: Female
  Weight: 46.71 kg

DRUGS (39)
  1. METHYLPREDNISOLONE [Suspect]
     Route: 042
     Dates: start: 20040316, end: 20061111
  2. DARVOCET [Concomitant]
     Indication: RHEUMATOID ARTHRITIS
  3. ACYCLOVIR [Concomitant]
     Indication: PRODUCT USED FOR UNKNOWN INDICATION
  4. METHYLPREDNISOLONE [Suspect]
     Route: 042
     Dates: start: 20030701
  5. NEXIUM [Concomitant]
     Indication: PRODUCT USED FOR UNKNOWN INDICATION
  6. FOLIC ACID [Concomitant]
     Indication: RHEUMATOID ARTHRITIS
  7. REMICADE [Suspect]
     Indication: PRODUCT USED FOR UNKNOWN INDICATION
     Route: 042
     Dates: start: 20020301
  8. DOXYCYCLINE [Concomitant]
     Indication: PRODUCT USED FOR UNKNOWN INDICATION
     Dates: start: 20050322
  9. PROVIGIL [Concomitant]
     Indication: PRODUCT USED FOR UNKNOWN INDICATION
  10. VIGAMOX [Concomitant]
     Indication: PRODUCT USED FOR UNKNOWN INDICATION
     Dates: start: 20060215
  11. ERBITUX [Suspect]
     Indication: TONSIL CANCER
     Dates: start: 20070807
  12. METHYLPREDNISOLONE [Suspect]
     Indication: PREMEDICATION
     Route: 042
     Dates: start: 20030701
  13. PREDNISONE [Suspect]
     Route: 048
     Dates: start: 20030701
  14. PREDNISONE [Suspect]
     Route: 048
     Dates: start: 20030701
  15. LODINE [Concomitant]
     Indication: PRODUCT USED FOR UNKNOWN INDICATION
  16. PREDNISONE [Suspect]
     Indication: PREMEDICATION
     Dosage: DOSE UNKNOWN, DAYS 2-14
     Route: 048
  17. LOTRISONE [Concomitant]
     Indication: PRODUCT USED FOR UNKNOWN INDICATION
  18. INVANZ [Concomitant]
     Indication: PRODUCT USED FOR UNKNOWN INDICATION
  19. METHOTREXATE [Concomitant]
     Indication: RHEUMATOID ARTHRITIS
     Dates: start: 20050221
  20. RANITIDINE [Concomitant]
     Indication: PRODUCT USED FOR UNKNOWN INDICATION
  21. RITUXIMAB [Suspect]
     Route: 042
     Dates: start: 20041201
  22. CLINDAMYCIN [Concomitant]
     Indication: PRODUCT USED FOR UNKNOWN INDICATION
  23. LOVENOX [Concomitant]
     Indication: PRODUCT USED FOR UNKNOWN INDICATION
  24. RITUXIMAB [Suspect]
     Route: 042
     Dates: start: 20040301
  25. CARBOPLATIN [Suspect]
     Indication: TONSIL CANCER
     Dates: start: 20070807, end: 20070921
  26. METHYLPREDNISOLONE [Suspect]
     Indication: RHEUMATOID ARTHRITIS
     Route: 042
     Dates: start: 20040316, end: 20061111
  27. PREDNISONE [Suspect]
     Indication: RHEUMATOID ARTHRITIS
     Dosage: DOSE UNKNOWN, DAYS 2-14
     Route: 048
  28. FLUCONAZOLE [Concomitant]
     Indication: PRODUCT USED FOR UNKNOWN INDICATION
  29. OXYCONTIN [Concomitant]
     Indication: PRODUCT USED FOR UNKNOWN INDICATION
     Dates: start: 20070901
  30. CALCIUM W/VITAMIN D [Concomitant]
     Indication: PRODUCT USED FOR UNKNOWN INDICATION
     Dates: start: 19990101
  31. RITUXIMAB [Suspect]
     Indication: RHEUMATOID ARTHRITIS
     Route: 042
     Dates: start: 20061101, end: 20061102
  32. RITUXIMAB [Suspect]
     Route: 042
     Dates: start: 20030701
  33. DECADRON [Concomitant]
     Indication: RHEUMATOID ARTHRITIS
     Dates: start: 20070801
  34. CYMBALTA [Concomitant]
     Indication: PRODUCT USED FOR UNKNOWN INDICATION
  35. ESTROGENIC SUBSTANCE [Concomitant]
     Indication: PRODUCT USED FOR UNKNOWN INDICATION
     Dates: start: 19890101
  36. DIFLUCAN [Concomitant]
     Indication: PRODUCT USED FOR UNKNOWN INDICATION
     Dates: start: 20070201
  37. LEVOTHYROXINE SODIUM [Concomitant]
     Indication: PRODUCT USED FOR UNKNOWN INDICATION
     Dates: start: 19950101
  38. REGLAN [Concomitant]
     Indication: PRODUCT USED FOR UNKNOWN INDICATION
  39. HYDROXYCHLOROQUINE SULFATE [Concomitant]

REACTIONS (4)
  - PROGRESSIVE MULTIFOCAL LEUKOENCEPHALOPATHY [None]
  - OROPHARYNGEAL CANCER STAGE UNSPECIFIED [None]
  - DEATH [None]
  - LYMPHOPENIA [None]
